FAERS Safety Report 25327421 (Version 3)
Quarter: 2025Q3

REPORT INFORMATION
  Report Type: Spontaneous
  Country: EU (occurrence: EU)
  Receive Date: 20250517
  Receipt Date: 20250702
  Transmission Date: 20251021
  Serious: Yes (Disabling)
  Sender: AUROBINDO
  Company Number: EU-INFARMED-T202504-766

PATIENT
  Age: 47 Year
  Sex: Female
  Weight: 69 kg

DRUGS (2)
  1. CLARITHROMYCIN [Suspect]
     Active Substance: CLARITHROMYCIN
     Indication: Bacterial disease carrier
     Dosage: 500 MILLIGRAM, TWO TIMES A DAY
     Route: 048
     Dates: start: 20250407
  2. AMOXICILLIN\CLAVULANIC ACID [Suspect]
     Active Substance: AMOXICILLIN\CLAVULANIC ACID
     Indication: Bacterial disease carrier
     Dosage: 1 DOSAGE FORM, TWO TIMES A DAY
     Route: 048
     Dates: start: 20250407

REACTIONS (20)
  - Affect lability [Recovered/Resolved]
  - Dysgeusia [Recovered/Resolved]
  - Aggression [Recovered/Resolved]
  - Headache [Recovered/Resolved]
  - Fatigue [Recovered/Resolved]
  - Insomnia [Recovered/Resolved]
  - Photophobia [Recovered/Resolved]
  - Hyperacusis [Recovered/Resolved]
  - Vomiting [Recovered/Resolved]
  - Enteritis [Recovered/Resolved]
  - Nausea [Recovered/Resolved]
  - Mucosal inflammation [Recovered/Resolved]
  - Erythema [Recovered/Resolved]
  - Anal pruritus [Recovered/Resolved]
  - Pruritus genital [Recovered/Resolved]
  - Pruritus [Recovered/Resolved]
  - Decreased appetite [Recovered/Resolved]
  - Haematoma [Recovered/Resolved]
  - Abdominal pain [Recovered/Resolved]
  - Burning sensation mucosal [Recovered/Resolved]

NARRATIVE: CASE EVENT DATE: 20250408
